FAERS Safety Report 6037824-3 (Version None)
Quarter: 2009Q1

REPORT INFORMATION
  Report Type: 
  Country: None (occurrence: None)
  Receive Date: 20090113
  Receipt Date: 20090105
  Transmission Date: 20090719
  Serious: Yes (Other)
  Sender: FDA-Public Use
  Company Number: TUK2008A00151

PATIENT
  Age: 73 Year
  Sex: Female

DRUGS (7)
  1. ACTOS [Suspect]
     Indication: TYPE 2 DIABETES MELLITUS
     Dosage: 30 MG
     Route: 048
     Dates: start: 20080401
  2. BISOPROLOL FUMARATE [Concomitant]
  3. METFORMIN HCL [Concomitant]
  4. GLICLAZIDE (GLICLAZIDE) [Concomitant]
  5. ADALAT CC [Concomitant]
  6. PRAVASTATIN [Concomitant]
  7. FERROUS SULFATE TAB [Concomitant]

REACTIONS (1)
  - HYPOCHROMIC ANAEMIA [None]
